FAERS Safety Report 20906200 (Version 4)
Quarter: 2022Q3

REPORT INFORMATION
  Report Type: Spontaneous
  Country: US (occurrence: US)
  Receive Date: 20220602
  Receipt Date: 20220726
  Transmission Date: 20221027
  Serious: No
  Sender: FDA-Public Use
  Company Number: US-PFIZER INC-202200784992

PATIENT
  Age: 71 Year
  Sex: Female
  Weight: 52.16 kg

DRUGS (2)
  1. PREMARIN [Suspect]
     Active Substance: ESTROGENS, CONJUGATED
     Indication: Menopause
     Dosage: 0.625 MG, ALTERNATE DAY (HALF A PILL ON MONDAY, WEDNESDAY, FRIDAY BY MOUTH)
     Route: 048
     Dates: end: 202205
  2. PREMARIN [Suspect]
     Active Substance: ESTROGENS, CONJUGATED
     Indication: Menopause
     Dosage: 0.625 MG, ALTERNATE DAY (HALF A PILL ON MONDAY, WEDNESDAY, FRIDAY BY MOUTH)
     Route: 048
     Dates: end: 202205

REACTIONS (4)
  - Hot flush [Unknown]
  - Drug ineffective [Unknown]
  - Intentional dose omission [Unknown]
  - Off label use [Unknown]

NARRATIVE: CASE EVENT DATE: 20220501
